FAERS Safety Report 21998906 (Version 1)
Quarter: 2023Q1

REPORT INFORMATION
  Report Type: Spontaneous
  Country: US (occurrence: None)
  Receive Date: 20230214
  Receipt Date: 20230214
  Transmission Date: 20230418
  Serious: No
  Sender: FDA-Public Use
  Company Number: None

PATIENT
  Age: 67 Year
  Sex: Male
  Weight: 58.97 kg

DRUGS (13)
  1. RYDAPT [Suspect]
     Active Substance: MIDOSTAURIN
     Indication: Acute myeloid leukaemia
     Dosage: FREQUENCY : TWICE A DAY;?
     Route: 048
     Dates: start: 202205
  2. ACYCLOVIR [Concomitant]
     Active Substance: ACYCLOVIR
  3. ALLOPURINOL [Concomitant]
     Active Substance: ALLOPURINOL
  4. ASPIRIN [Concomitant]
     Active Substance: ASPIRIN
  5. FOLIC ACID [Concomitant]
     Active Substance: FOLIC ACID
  6. LEVETIRACETAM [Concomitant]
     Active Substance: LEVETIRACETAM
  7. LIPITOR [Concomitant]
     Active Substance: ATORVASTATIN CALCIUM
  8. VITAMINS [Concomitant]
     Active Substance: VITAMINS
  9. NORVASC [Concomitant]
     Active Substance: AMLODIPINE BESYLATE
  10. TAB-A-VITE [Concomitant]
  11. THIAMINE [Concomitant]
     Active Substance: THIAMINE
  12. TRAMADOL [Concomitant]
     Active Substance: TRAMADOL
  13. TYLENOL [Concomitant]
     Active Substance: ACETAMINOPHEN

REACTIONS (2)
  - Liver function test increased [None]
  - Therapy interrupted [None]
